FAERS Safety Report 7874676-0 (Version None)
Quarter: 2011Q4

REPORT INFORMATION
  Report Type: 
  Country: None (occurrence: None)
  Receive Date: 20111031
  Receipt Date: 20111028
  Transmission Date: 20120403
  Serious: No
  Sender: FDA-Public Use
  Company Number: US-PFIZER INC-2011264674

PATIENT

DRUGS (1)
  1. SOLU-MEDROL [Suspect]
     Dosage: UNK, 1X/DAY
     Dates: start: 20111021, end: 20111023

REACTIONS (3)
  - PARAESTHESIA [None]
  - DIZZINESS [None]
  - FLUSHING [None]
